FAERS Safety Report 7067333-4 (Version None)
Quarter: 2010Q4

REPORT INFORMATION
  Report Type: 
  Country: None (occurrence: None)
  Receive Date: 20101022
  Receipt Date: 20101022
  Transmission Date: 20110411
  Serious: Yes (Hospitalization)
  Sender: FDA-Public Use
  Company Number: None

PATIENT
  Age: 48 Year
  Sex: Female
  Weight: 92.0802 kg

DRUGS (8)
  1. LAMOTRIGINE [Suspect]
     Indication: DEPRESSED MOOD
     Dosage: 25 MG QD FOR 10 DAYS PO ; 50 MG QD 11 FF PO
     Route: 048
     Dates: start: 20100920, end: 20101005
  2. CYMBALTA [Concomitant]
  3. WELLBUTRIN [Concomitant]
  4. LEVOXYL [Concomitant]
  5. MULTI-VITAMINS [Concomitant]
  6. CALCIUM [Concomitant]
  7. VITAMIN D [Concomitant]
  8. VITAMIN B-12 [Concomitant]

REACTIONS (5)
  - FATIGUE [None]
  - HEADACHE [None]
  - PAIN [None]
  - PHOTOPHOBIA [None]
  - PYREXIA [None]
